FAERS Safety Report 24631027 (Version 1)
Quarter: 2024Q4

REPORT INFORMATION
  Report Type: Spontaneous
  Country: ES (occurrence: ES)
  Receive Date: 20241118
  Receipt Date: 20241118
  Transmission Date: 20250115
  Serious: Yes (Other)
  Sender: ALCON
  Company Number: ES-Santen Oy-2024-ESP-011776

PATIENT

DRUGS (2)
  1. LATANOPROST\NETARSUDIL MESYLATE [Suspect]
     Active Substance: LATANOPROST\NETARSUDIL MESYLATE
     Indication: Glaucoma
     Dosage: 1 EYEDROP PER DAY
     Route: 061
     Dates: start: 20240613, end: 20240626
  2. Timolol/brimonidine [Concomitant]
     Indication: Glaucoma
     Dosage: 1 EYEDROP EACH 12 HOURS
     Route: 065
     Dates: start: 201509

REACTIONS (1)
  - Corneal oedema [Recovered/Resolved]

NARRATIVE: CASE EVENT DATE: 20240626
